FAERS Safety Report 15552025 (Version 1)
Quarter: 2018Q4

REPORT INFORMATION
  Report Type: Spontaneous
  Country: DE (occurrence: DE)
  Receive Date: 20181025
  Receipt Date: 20181025
  Transmission Date: 20190205
  Serious: Yes (Death)
  Sender: FDA-Public Use
  Company Number: DE-MYLANLABS-2018M1080071

PATIENT
  Age: 73 Year
  Sex: Female

DRUGS (5)
  1. CYTARABINE. [Suspect]
     Active Substance: CYTARABINE
     Dosage: UNK
  2. DAUNORUBICIN HYDROCHLORIDE. [Suspect]
     Active Substance: DAUNORUBICIN HYDROCHLORIDE
     Indication: ACUTE MYELOID LEUKAEMIA
     Dosage: 135 MG/M2, CYCLE, 135 MG/M2, CYCLIC (SINGLE CYCLE OF INDUCTION THERAPY) (INDUCTION CHEMOTHERAPY)
  3. ETOPOSIDE. [Suspect]
     Active Substance: ETOPOSIDE
     Indication: ACUTE MYELOID LEUKAEMIA
     Dosage: 500 MG/M2, CYCLE, 500 MG/M2, CYCLIC (SINGLE CYCLE OF INDUCTION THERAPY) (INDUCTION CHEMOTHERAPY)
  4. CYTARABINE. [Suspect]
     Active Substance: CYTARABINE
     Indication: ACUTE MYELOID LEUKAEMIA
     Dosage: 1400 MG/M2, CYCLE, 1400 MG/M2, CYCLIC (SINGLE CYCLE OF INDUCTION THERAPY) (INDUCTION CHEMOTHERAPY)
  5. PREDNISONE. [Suspect]
     Active Substance: PREDNISONE
     Indication: ACUTE MYELOID LEUKAEMIA
     Dosage: 90 MG/M2, CYCLE, 90 MG/M2, CYCLIC (SINGLE CYCLE OF INDUCTION THERAPY) (INDUCTION CHEMOTHERAPY)

REACTIONS (3)
  - Pneumonia [Fatal]
  - Pulmonary haemorrhage [Fatal]
  - Stenotrophomonas infection [Fatal]
